FAERS Safety Report 5581249-1 (Version None)
Quarter: 2007Q4

REPORT INFORMATION
  Report Type: 
  Country: None (occurrence: None)
  Receive Date: 20071226
  Receipt Date: 20071214
  Transmission Date: 20080405
  Serious: Yes (Other)
  Sender: FDA-Public Use
  Company Number: 000#8#2007-00350

PATIENT
  Age: 1 Month
  Sex: Male

DRUGS (1)
  1. ALPROSTADIL [Suspect]
     Indication: HEART DISEASE CONGENITAL
     Dosage: BEGUN WITH 1 MICROGRAM/KG/H, CONTINUED WITH MEAN RATE OF 0.021 MI, INTRAVENOUS DRI
     Route: 041

REACTIONS (6)
  - CARDIAC MURMUR [None]
  - CONGENITAL PULMONARY VALVE ATRESIA [None]
  - DRUG EXPOSURE DURING PREGNANCY [None]
  - NEONATAL RESPIRATORY DISTRESS SYNDROME [None]
  - OBSTRUCTION GASTRIC [None]
  - VOMITING PROJECTILE [None]
